FAERS Safety Report 17157941 (Version 1)
Quarter: 2019Q4

REPORT INFORMATION
  Report Type: Spontaneous
  Country: US (occurrence: US)
  Receive Date: 20191213
  Receipt Date: 20191213
  Transmission Date: 20200122
  Serious: Yes (Death)
  Sender: FDA-Public Use
  Company Number: None

PATIENT
  Age: 91 Year
  Sex: Male

DRUGS (1)
  1. ZOLADEX [Suspect]
     Active Substance: GOSERELIN ACETATE
     Indication: PROSTATE CANCER
     Dosage: ?          OTHER FREQUENCY:EVERY 90 DAYS;OTHER ROUTE:ADMINISTERED BY PROVIDER ONLY?
     Dates: start: 20190111, end: 20191208

REACTIONS (1)
  - Death [None]

NARRATIVE: CASE EVENT DATE: 20191208
